FAERS Safety Report 17229061 (Version 1)
Quarter: 2020Q1

REPORT INFORMATION
  Report Type: Spontaneous
  Country: US (occurrence: US)
  Receive Date: 20200102
  Receipt Date: 20200102
  Transmission Date: 20200409
  Serious: No
  Sender: FDA-Public Use
  Company Number: None

PATIENT
  Sex: Female

DRUGS (1)
  1. METRONIDAZOLE 0.75% VAGINAL GEL [Suspect]
     Active Substance: METRONIDAZOLE

REACTIONS (1)
  - Pruritus [None]
